FAERS Safety Report 12631791 (Version 3)
Quarter: 2016Q3

REPORT INFORMATION
  Report Type: Spontaneous
  Country: US (occurrence: US)
  Receive Date: 20160808
  Receipt Date: 20160819
  Transmission Date: 20161109
  Serious: No
  Sender: FDA-Public Use
  Company Number: US-BEH-2016061056

PATIENT
  Age: 70 Year
  Sex: Female
  Weight: 113.4 kg

DRUGS (24)
  1. CENTRUM SILVER [Concomitant]
     Active Substance: MINERALS\VITAMINS
  2. ACIDOPHILUS-PECTIN [Concomitant]
  3. XARELTO [Concomitant]
     Active Substance: RIVAROXABAN
  4. HIZENTRA [Suspect]
     Active Substance: HUMAN IMMUNOGLOBULIN G
     Dosage: UNK
     Route: 058
  5. ASMANEX [Concomitant]
     Active Substance: MOMETASONE FUROATE
  6. GAVISCON [Concomitant]
     Active Substance: ALUMINUM HYDROXIDE\MAGNESIUM CARBONATE
  7. CRESTOR [Concomitant]
     Active Substance: ROSUVASTATIN CALCIUM
  8. ALLEGRA [Concomitant]
     Active Substance: FEXOFENADINE HYDROCHLORIDE
  9. HIZENTRA [Suspect]
     Active Substance: HUMAN IMMUNOGLOBULIN G
     Indication: IMMUNODEFICIENCY COMMON VARIABLE
     Dosage: 12 G, QW
     Route: 058
     Dates: start: 20150707
  10. ACETAMINOPHEN. [Concomitant]
     Active Substance: ACETAMINOPHEN
  11. OXYBUTYNIN [Concomitant]
     Active Substance: OXYBUTYNIN
  12. GLUCOSAMINE [Concomitant]
     Active Substance: GLUCOSAMINE
  13. COMBIVENT [Concomitant]
     Active Substance: ALBUTEROL SULFATE\IPRATROPIUM BROMIDE
  14. DILTIAZEM. [Concomitant]
     Active Substance: DILTIAZEM
  15. FLUOROPLEX [Concomitant]
     Active Substance: FLUOROURACIL
  16. DIPHENHYDRAMINE. [Concomitant]
     Active Substance: DIPHENHYDRAMINE
  17. TIKOSYN [Concomitant]
     Active Substance: DOFETILIDE
  18. VITAMIN B12- FOLIC ACID [Concomitant]
  19. LIDOCAINE. [Concomitant]
     Active Substance: LIDOCAINE
  20. LEVOTHYROXINE. [Concomitant]
     Active Substance: LEVOTHYROXINE
  21. EPIPEN [Concomitant]
     Active Substance: EPINEPHRINE
  22. AZELASTINE [Concomitant]
     Active Substance: AZELASTINE
  23. FLONASE [Concomitant]
     Active Substance: FLUTICASONE PROPIONATE
  24. CALTRATE +D [Concomitant]

REACTIONS (1)
  - Bronchitis [Recovered/Resolved]

NARRATIVE: CASE EVENT DATE: 20151228
